FAERS Safety Report 7542685-7 (Version None)
Quarter: 2011Q2

REPORT INFORMATION
  Report Type: 
  Country: None (occurrence: None)
  Receive Date: 20110613
  Receipt Date: 20110603
  Transmission Date: 20111010
  Serious: Yes (Hospitalization)
  Sender: FDA-Public Use
  Company Number: B0724109A

PATIENT

DRUGS (1)
  1. NICOTINE [Suspect]
     Dosage: 1.5MG SINGLE DOSE
     Route: 065

REACTIONS (1)
  - ACCIDENTAL EXPOSURE [None]
